FAERS Safety Report 9912736 (Version 15)
Quarter: 2015Q3

REPORT INFORMATION
  Report Type: Spontaneous
  Country: US (occurrence: US)
  Receive Date: 20140220
  Receipt Date: 20150715
  Transmission Date: 20151125
  Serious: Yes (Hospitalization, Other)
  Sender: FDA-Public Use
  Company Number: US-PFIZER INC-2014046354

PATIENT
  Age: 64 Year
  Sex: Female
  Weight: 50.3 kg

DRUGS (12)
  1. SUTENT [Suspect]
     Active Substance: SUNITINIB MALATE
     Indication: METASTATIC RENAL CELL CARCINOMA
     Dosage: 50MG, DAILY, CYCLIC (4 CAPSULE OF 12.5 MG), 2 WEEKS ON AND 1 WEEK OFF
     Route: 048
     Dates: start: 20140130
  2. FOSRENOL [Concomitant]
     Active Substance: LANTHANUM CARBONATE
     Dosage: UNK
  3. FOLIC ACID. [Concomitant]
     Active Substance: FOLIC ACID
     Dosage: UNK
  4. SYNTHROID [Concomitant]
     Active Substance: LEVOTHYROXINE SODIUM
     Dosage: UNK
  5. VITAMIN D [Concomitant]
     Active Substance: CHOLECALCIFEROL
     Dosage: UNK, MONTHLY
  6. IRON [Concomitant]
     Active Substance: IRON
     Dosage: UNK
  7. SUTENT [Suspect]
     Active Substance: SUNITINIB MALATE
     Dosage: 37.5 MG, DAILY
     Dates: start: 20141013, end: 20150601
  8. AMLODIPINE [Concomitant]
     Active Substance: AMLODIPINE BESYLATE
     Dosage: UNK
  9. VITAMIN B12 [Concomitant]
     Active Substance: CYANOCOBALAMIN
     Dosage: UNK
  10. FERROUS SULFATE [Concomitant]
     Active Substance: FERROUS SULFATE\FERROUS SULFATE, DRIED
     Dosage: UNK
  11. ZOMETA [Concomitant]
     Active Substance: ZOLEDRONIC ACID
     Dosage: UNK
  12. HYDRALAZINE [Concomitant]
     Active Substance: HYDRALAZINE HYDROCHLORIDE
     Dosage: UNK

REACTIONS (38)
  - Haematochezia [Unknown]
  - Abdominal discomfort [Unknown]
  - Thyroid mass [Unknown]
  - Disease progression [Unknown]
  - Gastritis [Unknown]
  - Infrequent bowel movements [Recovered/Resolved]
  - Diarrhoea haemorrhagic [Unknown]
  - Jaundice [Unknown]
  - Vomiting [Not Recovered/Not Resolved]
  - Haemorrhoids [Unknown]
  - Gastric haemorrhage [Recovered/Resolved]
  - Mallory-Weiss syndrome [Unknown]
  - Dysgeusia [Unknown]
  - Anger [Recovered/Resolved]
  - Hepatic enzyme increased [Recovering/Resolving]
  - Aggression [Recovered/Resolved]
  - Metastatic renal cell carcinoma [Unknown]
  - Staphylococcal infection [Unknown]
  - Nausea [Not Recovered/Not Resolved]
  - Diarrhoea [Not Recovered/Not Resolved]
  - Insomnia [Recovered/Resolved]
  - Oesophagitis [Unknown]
  - Personality change [Recovered/Resolved]
  - Blood thyroid stimulating hormone increased [Unknown]
  - Haematemesis [Unknown]
  - Haemoglobin decreased [Unknown]
  - Decreased appetite [Recovering/Resolving]
  - Headache [Unknown]
  - Blood pressure increased [Unknown]
  - Acquired oesophageal web [Unknown]
  - White blood cell count decreased [Unknown]
  - Mood altered [Recovered/Resolved]
  - Abnormal behaviour [Recovered/Resolved]
  - Neutropenic colitis [Unknown]
  - Abdominal pain upper [Unknown]
  - Dizziness [Unknown]
  - Functional gastrointestinal disorder [Unknown]
  - Polyp [Unknown]

NARRATIVE: CASE EVENT DATE: 2014
